FAERS Safety Report 10035963 (Version 1)
Quarter: 2014Q1

REPORT INFORMATION
  Report Type: Spontaneous
  Country: CH (occurrence: CH)
  Receive Date: 20140325
  Receipt Date: 20140325
  Transmission Date: 20141002
  Serious: Yes (Hospitalization)
  Sender: FDA-Public Use
  Company Number: CH-PFIZER INC-2014081444

PATIENT
  Age: 69 Year
  Sex: Male

DRUGS (13)
  1. ALDACTONE [Suspect]
     Indication: CARDIAC FAILURE
     Dosage: 50 MG, 1X/DAY
     Route: 048
  2. CARBOPLATIN [Interacting]
     Indication: LUNG NEOPLASM MALIGNANT
     Dosage: 695 MG EVERY THREE WEEKS
     Route: 042
     Dates: start: 20130729, end: 20130910
  3. GEMCITABINE HYDROCHLORIDE [Interacting]
     Indication: LUNG NEOPLASM MALIGNANT
     Dosage: 2000 MG, TWICE EVERY 3 WEEKS
     Route: 042
     Dates: start: 20130729, end: 20130917
  4. TORASEMIDE [Suspect]
     Indication: CARDIAC FAILURE
     Dosage: 30 MG (20MG MORNING; 10MG EVENING, DAILY
     Route: 048
  5. PLAVIX [Suspect]
     Indication: ACUTE MYOCARDIAL INFARCTION
     Dosage: 75 MG, 1X/DAY
     Route: 048
  6. BELOC ZOK [Suspect]
     Indication: ACUTE MYOCARDIAL INFARCTION
     Dosage: 25 MG, 1X/DAY
     Route: 048
  7. NOVORAPID [Concomitant]
     Indication: DIABETES MELLITUS
     Route: 058
  8. INSULATARD [Concomitant]
     Indication: DIABETES MELLITUS
     Route: 058
  9. ASPIRIN CARDIO [Concomitant]
     Indication: ACUTE MYOCARDIAL INFARCTION
     Dosage: 100 MG, 1X/DAY
     Route: 048
  10. LISITRIL [Concomitant]
     Indication: CARDIAC FAILURE
     Dosage: 20 MG, WEEKLY
     Route: 048
  11. METFIN [Concomitant]
     Indication: DIABETES MELLITUS
     Dosage: 1000 MG, 2X/DAY
     Route: 048
  12. ATORVASTATIN [Concomitant]
     Indication: ACUTE MYOCARDIAL INFARCTION
     Dosage: 40 MG, 1X/DAY
     Route: 048
  13. SPIRIVA [Concomitant]
     Indication: CHRONIC OBSTRUCTIVE PULMONARY DISEASE
     Dosage: 18 UG, 1X/DAY
     Route: 055

REACTIONS (4)
  - Thrombocytopenia [Recovered/Resolved]
  - Anaemia [Not Recovered/Not Resolved]
  - Cardiac failure [Recovered/Resolved]
  - Drug interaction [Unknown]
